FAERS Safety Report 24567198 (Version 4)
Quarter: 2025Q3

REPORT INFORMATION
  Report Type: Report from Study
  Country: CN (occurrence: CN)
  Receive Date: 20241030
  Receipt Date: 20250803
  Transmission Date: 20251020
  Serious: Yes (Hospitalization, Other)
  Sender: ALEXION PHARMACEUTICALS
  Company Number: CN-ASTRAZENECA-202410GLO006201CN

PATIENT
  Age: 6 Year
  Sex: Female

DRUGS (12)
  1. SELUMETINIB [Suspect]
     Active Substance: SELUMETINIB
     Indication: Neurofibromatosis
     Dosage: 25 MILLIGRAM, BID
     Dates: start: 20240820
  2. ACETAMINOPHEN\BOS TAURUS GALLSTONE\CHLORPHENIRAMINE MALEATE [Concomitant]
     Active Substance: ACETAMINOPHEN\BOS TAURUS GALLSTONE\CHLORPHENIRAMINE MALEATE
     Dosage: UNK, GRAM, BID
     Route: 065
     Dates: start: 20241102, end: 20241106
  3. CETIRIZINE HYDROCHLORIDE [Concomitant]
     Active Substance: CETIRIZINE HYDROCHLORIDE
     Dosage: UNK, MG, QD
     Route: 065
     Dates: start: 20241111, end: 20241112
  4. DEXTROSE [Concomitant]
     Active Substance: DEXTROSE MONOHYDRATE
     Indication: Nutritional supplementation
     Dosage: UNK, QD
     Route: 065
     Dates: start: 20241120, end: 20241120
  5. VITAMIN C [Concomitant]
     Active Substance: ASCORBIC ACID
     Indication: Nutritional supplementation
     Dosage: UNK, GRAM, QD
     Route: 065
     Dates: start: 20241120, end: 20241120
  6. IBUPROFEN [Concomitant]
     Active Substance: IBUPROFEN
     Dosage: UNK, GRAM, QD
     Route: 065
     Dates: start: 20241223, end: 20241223
  7. OSELTAMIVIR [Concomitant]
     Active Substance: OSELTAMIVIR
     Dosage: UNK, MG, QD
     Route: 065
     Dates: start: 20241223, end: 20241227
  8. TAURINE [Concomitant]
     Active Substance: TAURINE
     Dosage: UNK, GRAM, TID
     Route: 065
     Dates: start: 20241223, end: 20241227
  9. AMOXICILLIN [Concomitant]
     Active Substance: AMOXICILLIN
     Dosage: UNK, GRAM, BID
     Route: 065
     Dates: start: 20241223, end: 20241227
  10. AMOXICILLIN [Concomitant]
     Active Substance: AMOXICILLIN
     Dosage: UNK, GRAM, QD
     Route: 065
     Dates: start: 20241228, end: 20241228
  11. TERBUTALINE [Concomitant]
     Active Substance: TERBUTALINE
     Dosage: UNK, MG, BID
     Route: 065
     Dates: start: 20241004
  12. BUDESONIDE [Concomitant]
     Active Substance: BUDESONIDE
     Dosage: UNK, BID
     Route: 065
     Dates: start: 20241004

REACTIONS (1)
  - Pneumonia [Recovered/Resolved]

NARRATIVE: CASE EVENT DATE: 20241007
